FAERS Safety Report 25810350 (Version 2)
Quarter: 2025Q3

REPORT INFORMATION
  Report Type: Spontaneous
  Country: US (occurrence: US)
  Receive Date: 20250917
  Receipt Date: 20250929
  Transmission Date: 20251021
  Serious: No
  Sender: TORRENT PHARMA INC.
  Company Number: US-TORRENT-00014492

PATIENT
  Age: 69 Year
  Sex: Female
  Weight: 63 kg

DRUGS (5)
  1. PANTOPRAZOLE SODIUM [Suspect]
     Active Substance: PANTOPRAZOLE SODIUM
     Indication: Product used for unknown indication
     Dosage: BEEN TAKING PANTOPRAZOLE SINCE 2022, 1 TABLET TWICE A DAY BY MOUTH BEFORE MEAL
     Route: 048
     Dates: start: 20250629
  2. ALBUTEROL [Concomitant]
     Active Substance: ALBUTEROL
     Indication: Product used for unknown indication
     Route: 065
  3. HUMIRA [Concomitant]
     Active Substance: ADALIMUMAB
     Indication: Product used for unknown indication
     Route: 065
  4. MONTELUKAST [Concomitant]
     Active Substance: MONTELUKAST
     Indication: Product used for unknown indication
     Route: 065
  5. TYLENOL [Concomitant]
     Active Substance: ACETAMINOPHEN
     Indication: Product used for unknown indication
     Route: 065

REACTIONS (13)
  - Nausea [Recovered/Resolved]
  - Product quality issue [Unknown]
  - Abdominal pain [Recovered/Resolved]
  - Diarrhoea [Recovered/Resolved]
  - Illness [Recovered/Resolved]
  - Malaise [Recovered/Resolved]
  - Anal incontinence [Recovered/Resolved]
  - Abnormal faeces [Recovered/Resolved]
  - Dyspepsia [Recovered/Resolved]
  - Hyperhidrosis [Unknown]
  - Product odour abnormal [Unknown]
  - Product dispensing error [Unknown]
  - Product container issue [Unknown]

NARRATIVE: CASE EVENT DATE: 20250629
